FAERS Safety Report 9384879 (Version 4)
Quarter: 2013Q3

REPORT INFORMATION
  Report Type: Spontaneous
  Country: US (occurrence: US)
  Receive Date: 20130705
  Receipt Date: 20130801
  Transmission Date: 20140515
  Serious: Yes (Disabling)
  Sender: FDA-Public Use
  Company Number: US-PFIZER INC-2013199140

PATIENT
  Age: 64 Year
  Sex: Female
  Weight: 85.7 kg

DRUGS (10)
  1. PROTONIX [Suspect]
     Indication: IRRITABLE BOWEL SYNDROME
     Dosage: 40 MG, 1X/DAY
  2. PROTONIX [Suspect]
     Indication: GASTROINTESTINAL DISORDER
  3. PROTONIX [Suspect]
     Indication: DYSPEPSIA
  4. PROTONIX [Suspect]
     Indication: GASTROOESOPHAGEAL REFLUX DISEASE
  5. PRILOSEC [Suspect]
     Indication: IRRITABLE BOWEL SYNDROME
     Dosage: UNK
  6. PRILOSEC [Suspect]
     Indication: GASTROINTESTINAL DISORDER
  7. PRILOSEC [Suspect]
     Indication: DYSPEPSIA
  8. PRILOSEC [Suspect]
     Indication: GASTROOESOPHAGEAL REFLUX DISEASE
  9. ZOLOFT [Concomitant]
     Indication: DEPRESSION
     Dosage: UNK
  10. ZOLOFT [Concomitant]
     Indication: ANXIETY

REACTIONS (8)
  - Foot fracture [Unknown]
  - Abdominal distension [Unknown]
  - Gastritis [Unknown]
  - Rhinorrhoea [Unknown]
  - Blood test abnormal [Unknown]
  - Myalgia [Unknown]
  - Muscle strain [Unknown]
  - Off label use [Unknown]
